FAERS Safety Report 6130635-X (Version None)
Quarter: 2009Q1

REPORT INFORMATION
  Report Type: 
  Country: None (occurrence: None)
  Receive Date: 20090325
  Receipt Date: 20090316
  Transmission Date: 20090719
  Serious: Yes (Death, Life-Threatening)
  Sender: FDA-Public Use
  Company Number: GB-TEVA-188079ISR

PATIENT
  Age: 11 Year
  Sex: Male

DRUGS (9)
  1. ETOPOSIDE, INJECTION, 20 MG/ML [Suspect]
     Indication: ACUTE LYMPHOCYTIC LEUKAEMIA RECURRENT
     Dates: start: 20090105, end: 20090109
  2. CLOFARABINE [Suspect]
     Route: 042
     Dates: start: 20090105, end: 20090109
  3. CYCLOPHOSPHAMIDE [Suspect]
     Dates: start: 20090105, end: 20090109
  4. DEXAMETHASONE TAB [Concomitant]
     Dates: start: 20090101, end: 20090108
  5. LACTULOSE [Concomitant]
     Dates: start: 20081231, end: 20090107
  6. LOPERAMIDE HCL [Concomitant]
     Dates: start: 20090107, end: 20090113
  7. LOPERAMIDE HCL [Concomitant]
     Dates: start: 20090106, end: 20090111
  8. METOCLOPRAMIDE [Concomitant]
     Dates: start: 20090101, end: 20090131
  9. OMEPRAZOLE [Concomitant]
     Dates: start: 20090130, end: 20090131

REACTIONS (2)
  - NEUTROPENIC COLITIS [None]
  - SEPSIS [None]
